FAERS Safety Report 18620271 (Version 3)
Quarter: 2020Q4

REPORT INFORMATION
  Report Type: Spontaneous
  Country: US (occurrence: US)
  Receive Date: 20201215
  Receipt Date: 20201217
  Transmission Date: 20210114
  Serious: No
  Sender: FDA-Public Use
  Company Number: US-PFIZER INC-2020494597

PATIENT
  Age: 61 Year
  Sex: Female

DRUGS (1)
  1. IBRANCE [Suspect]
     Active Substance: PALBOCICLIB
     Indication: MALIGNANT NIPPLE NEOPLASM FEMALE
     Dosage: 125 MG, 1X/DAY; 125 MG QD (ONCE A DAY)
     Dates: start: 20191015

REACTIONS (2)
  - Sinusitis [Unknown]
  - Nasal congestion [Unknown]
